FAERS Safety Report 7962986-8 (Version None)
Quarter: 2011Q4

REPORT INFORMATION
  Report Type: 
  Country: None (occurrence: None)
  Receive Date: 20111207
  Receipt Date: 20111128
  Transmission Date: 20120403
  Serious: Yes (Hospitalization)
  Sender: FDA-Public Use
  Company Number: US-ASTRAZENECA-2011SE55681

PATIENT
  Age: 27 Year
  Sex: Female
  Weight: 68 kg

DRUGS (19)
  1. SEROQUEL [Suspect]
     Route: 048
  2. SEROQUEL [Suspect]
     Route: 048
     Dates: start: 20110803
  3. SEROQUEL [Suspect]
     Route: 048
  4. LAMICTAL [Suspect]
     Indication: MOOD SWINGS
     Route: 048
  5. ATIVAN [Concomitant]
  6. SEROQUEL [Suspect]
     Route: 048
  7. LORAZEPAM [Concomitant]
     Indication: ANXIOLYTIC THERAPY
  8. SEROQUEL [Suspect]
     Indication: BIPOLAR DISORDER
     Route: 048
     Dates: start: 20110718
  9. SEROQUEL [Suspect]
     Route: 048
     Dates: start: 20110803
  10. SEROQUEL [Suspect]
     Indication: BIPOLAR I DISORDER
     Route: 048
     Dates: start: 20110718
  11. SEROQUEL [Suspect]
     Route: 048
     Dates: start: 20110803
  12. SEROQUEL [Suspect]
     Route: 048
     Dates: start: 20110803
  13. SEROQUEL [Suspect]
     Route: 048
  14. SEROQUEL [Suspect]
     Route: 048
  15. LAMICTAL [Suspect]
     Route: 048
  16. CARBATROL [Suspect]
     Route: 065
     Dates: start: 20110718
  17. SEROQUEL [Suspect]
     Route: 048
  18. SEROQUEL [Suspect]
     Route: 048
     Dates: start: 20110803
  19. SEROQUEL [Suspect]
     Route: 048
     Dates: start: 20110803

REACTIONS (15)
  - FEELING ABNORMAL [None]
  - ABNORMAL BEHAVIOUR [None]
  - RASH GENERALISED [None]
  - RASH [None]
  - AGITATION [None]
  - HYPOMANIA [None]
  - NERVOUSNESS [None]
  - THIRST [None]
  - DRUG DOSE OMISSION [None]
  - HEART RATE IRREGULAR [None]
  - MUSCLE SPASMS [None]
  - ANXIETY [None]
  - MANIA [None]
  - INSOMNIA [None]
  - AMNESIA [None]
